FAERS Safety Report 9650385 (Version 4)
Quarter: 2018Q3

REPORT INFORMATION
  Report Type: Report from Study
  Country: None (occurrence: CA)
  Receive Date: 20131028
  Receipt Date: 20180925
  Transmission Date: 20181010
  Serious: Yes (Hospitalization, Other)
  Sender: FDA-Public Use
  Company Number: CA-ABBVIE-13P-028-1069471-00

PATIENT
  Sex: Female

DRUGS (2)
  1. HUMIRA [Suspect]
     Active Substance: ADALIMUMAB
     Indication: CROHN^S DISEASE
     Route: 058
     Dates: start: 20090505
  2. HUMIRA [Suspect]
     Active Substance: ADALIMUMAB
     Route: 058
     Dates: start: 2013

REACTIONS (10)
  - Weight increased [Not Recovered/Not Resolved]
  - Disturbance in attention [Not Recovered/Not Resolved]
  - Intestinal perforation [Recovering/Resolving]
  - Pain [Not Recovered/Not Resolved]
  - Stomach mass [Not Recovered/Not Resolved]
  - Proctitis ulcerative [Not Recovered/Not Resolved]
  - Sepsis [Recovering/Resolving]
  - Cerebrovascular accident [Recovering/Resolving]
  - Diarrhoea [Not Recovered/Not Resolved]
  - Hernia [Not Recovered/Not Resolved]

NARRATIVE: CASE EVENT DATE: 2013
